FAERS Safety Report 14457296 (Version 1)
Quarter: 2018Q1

REPORT INFORMATION
  Report Type: Spontaneous
  Country: US (occurrence: US)
  Receive Date: 20180127
  Receipt Date: 20180127
  Transmission Date: 20180509
  Serious: Yes (Hospitalization)
  Sender: FDA-Public Use
  Company Number: None

PATIENT
  Age: 52 Year
  Sex: Male
  Weight: 81.6 kg

DRUGS (1)
  1. XELODA [Suspect]
     Active Substance: CAPECITABINE
     Dates: end: 20170912

REACTIONS (1)
  - Hospitalisation [None]

NARRATIVE: CASE EVENT DATE: 20171130
